FAERS Safety Report 23258813 (Version 1)
Quarter: 2023Q4

REPORT INFORMATION
  Report Type: Spontaneous
  Country: US (occurrence: None)
  Receive Date: 20231203
  Receipt Date: 20231203
  Transmission Date: 20240109
  Serious: No
  Sender: FDA-Public Use
  Company Number: None

PATIENT
  Age: 64 Year
  Sex: Male
  Weight: 96.3 kg

DRUGS (7)
  1. FINASTERIDE [Suspect]
     Active Substance: FINASTERIDE
     Indication: Hair transplant
     Dates: start: 20230823, end: 20231001
  2. LISINOPRIL [Concomitant]
     Active Substance: LISINOPRIL
  3. Atorvastattin [Concomitant]
  4. CHLORTHALIDONE [Concomitant]
     Active Substance: CHLORTHALIDONE
  5. nebivolo [Concomitant]
  6. om eprazole [Concomitant]
  7. ALLOPURINOL [Concomitant]
     Active Substance: ALLOPURINOL

REACTIONS (3)
  - Abnormal dreams [None]
  - Abnormal behaviour [None]
  - Feeling abnormal [None]

NARRATIVE: CASE EVENT DATE: 20231001
